FAERS Safety Report 7558943-6 (Version None)
Quarter: 2011Q2

REPORT INFORMATION
  Report Type: 
  Country: None (occurrence: None)
  Receive Date: 20110621
  Receipt Date: 20110613
  Transmission Date: 20111010
  Serious: Yes (Other)
  Sender: FDA-Public Use
  Company Number: JP-ASTELLAS-2011JP003662

PATIENT
  Sex: Male

DRUGS (2)
  1. PROGRAF [Suspect]
     Indication: LIVER TRANSPLANT
     Dosage: UNK
     Route: 065
     Dates: start: 20110519, end: 20110530
  2. PROGRAF [Suspect]
     Dosage: UNK
     Route: 065
     Dates: start: 20110603

REACTIONS (2)
  - DRUG INEFFECTIVE [None]
  - HAEMOLYTIC ANAEMIA [None]
